FAERS Safety Report 9747169 (Version 1)
Quarter: 2013Q4

REPORT INFORMATION
  Report Type: Report from Study
  Country: CN (occurrence: CN)
  Receive Date: 20131211
  Receipt Date: 20131211
  Transmission Date: 20140711
  Serious: Yes (Hospitalization)
  Sender: FDA-Public Use
  Company Number: CN-ROCHE-1314656

PATIENT
  Age: 49 Year
  Sex: Female
  Weight: 75 kg

DRUGS (4)
  1. CELLCEPT [Suspect]
     Indication: RENAL TRANSPLANT
     Dosage: 750MG PER MORING AND 500MG PER NIGHT
     Route: 048
     Dates: start: 20050719
  2. CICLOSPORIN A [Concomitant]
     Indication: RENAL TRANSPLANT
     Route: 048
     Dates: start: 20050719, end: 201311
  3. CICLOSPORIN A [Concomitant]
     Route: 048
     Dates: start: 201311
  4. PREDNISONE ACETATE [Concomitant]
     Indication: RENAL TRANSPLANT
     Route: 048
     Dates: start: 20050719

REACTIONS (4)
  - Diarrhoea [Recovered/Resolved]
  - Pyrexia [Recovered/Resolved]
  - White blood cell count increased [Unknown]
  - Immunosuppressant drug level decreased [Unknown]
